FAERS Safety Report 8365029-X (Version None)
Quarter: 2012Q2

REPORT INFORMATION
  Report Type: 
  Country: None (occurrence: None)
  Receive Date: 20120516
  Receipt Date: 20120316
  Transmission Date: 20120825
  Serious: Yes (Disabling)
  Sender: FDA-Public Use
  Company Number: JP-GLAXOSMITHKLINE-B0789941A

PATIENT
  Sex: Male
  Weight: 51 kg

DRUGS (3)
  1. VALTREX [Suspect]
     Indication: HERPES ZOSTER
     Dosage: 3000MG PER DAY
     Route: 048
     Dates: start: 20120312, end: 20120316
  2. ARASENA-A [Concomitant]
     Indication: HERPES ZOSTER
     Route: 061
     Dates: start: 20120312, end: 20120316
  3. LYRICA [Suspect]
     Indication: HERPES ZOSTER
     Dosage: 300MG PER DAY
     Route: 048
     Dates: start: 20120312, end: 20120316

REACTIONS (5)
  - ANURIA [None]
  - RENAL FAILURE ACUTE [None]
  - CONVULSION [None]
  - ALTERED STATE OF CONSCIOUSNESS [None]
  - OLIGURIA [None]
